FAERS Safety Report 7913422-9 (Version None)
Quarter: 2011Q4

REPORT INFORMATION
  Report Type: 
  Country: None (occurrence: None)
  Receive Date: 20111115
  Receipt Date: 20111111
  Transmission Date: 20120403
  Serious: Yes (Hospitalization)
  Sender: FDA-Public Use
  Company Number: US-BIOGENIDEC-2011BI041706

PATIENT
  Age: 72 Year
  Sex: Female

DRUGS (1)
  1. AVONEX [Suspect]
     Indication: MULTIPLE SCLEROSIS
     Route: 030
     Dates: start: 20070701

REACTIONS (5)
  - TREMOR [None]
  - DIVERTICULAR PERFORATION [None]
  - COLONIC POLYP [None]
  - UNRESPONSIVE TO STIMULI [None]
  - GAIT DISTURBANCE [None]
